FAERS Safety Report 14590709 (Version 1)
Quarter: 2018Q1

REPORT INFORMATION
  Report Type: Spontaneous
  Country: US (occurrence: US)
  Receive Date: 20180301
  Receipt Date: 20180301
  Transmission Date: 20180509
  Serious: Yes (Life-Threatening)
  Sender: FDA-Public Use
  Company Number: None

PATIENT

DRUGS (2)
  1. LANTUS [Suspect]
     Active Substance: INSULIN GLARGINE
     Indication: TYPE 2 DIABETES MELLITUS
     Route: 059
     Dates: start: 20171206
  2. HUMALOG  SLIDING SCALE 2 UNITS [Concomitant]
     Dates: start: 20171206

REACTIONS (2)
  - Blood glucose decreased [None]
  - Hyperhidrosis [None]

NARRATIVE: CASE EVENT DATE: 20171206
